FAERS Safety Report 5962243-5 (Version None)
Quarter: 2008Q4

REPORT INFORMATION
  Report Type: 
  Country: None (occurrence: None)
  Receive Date: 20081121
  Receipt Date: 20081121
  Transmission Date: 20090506
  Serious: Yes (Life-Threatening, Hospitalization, Other)
  Sender: FDA-Public Use
  Company Number: JP-B.I. PHARMACEUTICALS,INC./RIDGEFIELD-2008-BP-17000NB

PATIENT
  Sex: Male
  Weight: 64.6 kg

DRUGS (10)
  1. MICARDIS [Suspect]
     Indication: HYPERTENSION
     Dosage: 80MG
     Route: 048
     Dates: start: 20060516
  2. ALMARL [Concomitant]
     Dosage: 10MG
     Route: 048
  3. MEXITIL [Concomitant]
     Dosage: 100MG
     Route: 048
  4. BASEN [Concomitant]
     Dosage: .6MG
     Route: 048
  5. KINEDAK [Concomitant]
     Dosage: 150MG
     Route: 048
  6. JUVELA NICOTINATE [Concomitant]
     Dosage: 300MG
     Route: 048
  7. CYANOCOBALAMIN [Concomitant]
     Dosage: 1500MCG
     Route: 048
  8. PRORENAL [Concomitant]
     Dosage: 30MCG
     Route: 048
  9. PENFILL 30R [Concomitant]
     Dosage: 25U
     Route: 058
  10. AMLODIN [Concomitant]
     Indication: HYPERTENSION
     Dosage: 1.25MG
     Route: 048
     Dates: start: 20070919, end: 20080606

REACTIONS (2)
  - BLADDER CANCER [None]
  - VITH NERVE PARALYSIS [None]
